FAERS Safety Report 4310370-0 (Version None)
Quarter: 2004Q1

REPORT INFORMATION
  Report Type: 
  Country: None (occurrence: None)
  Receive Date: 20040302
  Receipt Date: 20040119
  Transmission Date: 20041129
  Serious: No
  Sender: FDA-Public Use
  Company Number: A01200400267

PATIENT
  Age: 71 Year
  Sex: Male

DRUGS (12)
  1. RESONIUM - (SODIUM POLYSTYRENE SULFONATE) - POWDER [Suspect]
     Indication: HYPERKALAEMIA
     Dosage: 15 G
     Route: 048
     Dates: start: 20031106, end: 20031120
  2. NATRIUM HYDROGENCARBONATE [Concomitant]
  3. NEORECORMON (EPOETIN BETA) [Concomitant]
  4. NORVASC [Concomitant]
  5. ETALPHA LEO (ALFACALCIDOL) [Concomitant]
  6. INHIBIN (HYDROQUINONE, THIAMINE HYDROCHLORIDE) [Concomitant]
  7. METOPROLOL TARTRAAT PCH (METOPROLOL) [Concomitant]
  8. ACETYLSALICYLIC ACID [Concomitant]
  9. RAMIPRIL [Concomitant]
  10. HYDROQUININE [Concomitant]
  11. DIAZEPAM [Concomitant]
  12. SENNA [Concomitant]

REACTIONS (2)
  - MUSCLE CRAMP [None]
  - MYOCLONUS [None]
